FAERS Safety Report 7584388-9 (Version None)
Quarter: 2011Q2

REPORT INFORMATION
  Report Type: 
  Country: None (occurrence: None)
  Receive Date: 20110630
  Receipt Date: 20110622
  Transmission Date: 20111010
  Serious: Yes (Other)
  Sender: FDA-Public Use
  Company Number: GB-PFIZER INC-2011138360

PATIENT
  Age: 35 Year
  Sex: Female

DRUGS (19)
  1. ITRACONAZOLE [Concomitant]
     Dosage: 200 MG, UNK
     Dates: start: 20101212
  2. SANDOCAL [Concomitant]
     Dosage: 1 DF, UNK
     Dates: start: 20101227, end: 20101227
  3. GEMTUZUMAB OZOGAMICIN [Suspect]
     Indication: MYELODYSPLASTIC SYNDROME
  4. OMEPRAZOLE [Concomitant]
     Dosage: 20 MG, UNK
     Dates: start: 20101212
  5. TRANEXAMIC ACID [Concomitant]
     Dosage: 1 G, UNK
  6. ETOPOSIDE [Suspect]
     Dosage: UNK
     Dates: start: 20101212, end: 20101221
  7. DIPROBASE CREAM [Concomitant]
     Dosage: UNK
     Route: 061
     Dates: start: 20101227, end: 20101231
  8. DAUNORUBICIN HCL [Suspect]
     Dosage: UNK
     Dates: start: 20101212, end: 20101221
  9. DIFFLAM [Concomitant]
     Dosage: 10 ML, UNK
     Route: 048
     Dates: start: 20101212
  10. NORETHISTERONE [Concomitant]
     Dosage: 15 MG, UNK
     Dates: start: 20101213
  11. GEMTUZUMAB OZOGAMICIN [Suspect]
     Indication: ACUTE MYELOID LEUKAEMIA
     Dosage: 6 MG/M2, UNK
     Dates: start: 20101212, end: 20101221
  12. CYTARABINE [Suspect]
     Indication: ACUTE MYELOID LEUKAEMIA
     Dosage: UNK
     Dates: start: 20101212, end: 20101221
  13. VANCOMYCIN [Concomitant]
     Dosage: 1 G, UNK
     Dates: start: 20101227
  14. ACICLOVIR [Concomitant]
     Dosage: 200 MG, UNK
     Dates: start: 20101212
  15. CHLORHEXIDINE [Concomitant]
     Dosage: 10 ML, UNK
     Route: 048
     Dates: start: 20101212
  16. CYTARABINE [Suspect]
     Indication: MYELODYSPLASTIC SYNDROME
  17. METRONIDAZOLE [Concomitant]
     Dosage: 500 MG, UNK
     Dates: start: 20101222
  18. PIPERACILLIN AND TAZOBACTAM [Concomitant]
     Dosage: 4.5 G, UNK
     Dates: start: 20101220, end: 20101229
  19. CEFTAZIDIME [Concomitant]
     Dosage: 2 G, UNK
     Dates: start: 20101223

REACTIONS (1)
  - HYPOKALAEMIA [None]
